FAERS Safety Report 4780917-9 (Version None)
Quarter: 2005Q3

REPORT INFORMATION
  Report Type: 
  Country: None (occurrence: None)
  Receive Date: 20050926
  Receipt Date: 20050926
  Transmission Date: 20060218
  Serious: Yes (Other)
  Sender: FDA-Public Use
  Company Number: None

PATIENT
  Sex: Male
  Weight: 92.5338 kg

DRUGS (3)
  1. ENBREL [Suspect]
     Indication: RHEUMATOID ARTHRITIS
     Dosage: 50 MG WEEKLY SQ
     Route: 058
     Dates: start: 20031101, end: 20050829
  2. AMBIEN [Concomitant]
  3. ADVIL [Concomitant]

REACTIONS (1)
  - DRUG HYPERSENSITIVITY [None]
